FAERS Safety Report 5662223-3 (Version None)
Quarter: 2008Q1

REPORT INFORMATION
  Report Type: 
  Country: None (occurrence: None)
  Receive Date: 20080312
  Receipt Date: 20080303
  Transmission Date: 20080703
  Serious: Yes (Death, Hospitalization, Other)
  Sender: FDA-Public Use
  Company Number: US-PFIZER INC-2005057052

PATIENT
  Sex: Female

DRUGS (10)
  1. BEXTRA [Suspect]
     Indication: OSTEOARTHRITIS
  2. BEXTRA [Suspect]
     Indication: CARPAL TUNNEL SYNDROME
  3. VERAPAMIL [Concomitant]
  4. HYDROCHLOROTHIAZIDE [Concomitant]
  5. LIPITOR [Concomitant]
     Indication: HYPERCHOLESTEROLAEMIA
  6. DIOVAN [Concomitant]
  7. ASPIRIN [Concomitant]
  8. CALCIUM [Concomitant]
  9. VITAMIN CAP [Concomitant]
  10. ACIPHEX [Concomitant]

REACTIONS (3)
  - BRAIN DEATH [None]
  - CORONARY ARTERY DISEASE [None]
  - EMBOLIC STROKE [None]
